FAERS Safety Report 18753540 (Version 1)
Quarter: 2021Q1

REPORT INFORMATION
  Report Type: Spontaneous
  Country: US (occurrence: US)
  Receive Date: 20210118
  Receipt Date: 20210118
  Transmission Date: 20210419
  Serious: Yes (Hospitalization, Other)
  Sender: FDA-Public Use
  Company Number: US-ANIPHARMA-2020-US-026299

PATIENT
  Age: 52 Year
  Sex: Female

DRUGS (1)
  1. CEFADROXIL (NON?SPECIFIC) [Suspect]
     Active Substance: CEFADROXIL
     Indication: ANTIBIOTIC PROPHYLAXIS

REACTIONS (2)
  - Drug reaction with eosinophilia and systemic symptoms [Recovered/Resolved]
  - Acute hepatic failure [Recovered/Resolved]
